FAERS Safety Report 4875720-5 (Version None)
Quarter: 2006Q1

REPORT INFORMATION
  Report Type: 
  Country: None (occurrence: None)
  Receive Date: 20060109
  Receipt Date: 20051215
  Transmission Date: 20060701
  Serious: Yes (Other)
  Sender: FDA-Public Use
  Company Number: DE-BOEHRINGER INGELHEIM PHARMACEUTICALS, INC.-2006-DE-00094DE

PATIENT
  Age: 74 Year
  Sex: Male

DRUGS (5)
  1. SIFROL [Suspect]
     Indication: PARKINSON'S DISEASE
     Route: 048
  2. SIFROL [Suspect]
     Route: 048
  3. AMANTADINE HCL [Concomitant]
  4. SELEGILINE HCL [Concomitant]
  5. LEVODOPA [Concomitant]

REACTIONS (1)
  - RECTAL CANCER [None]
